FAERS Safety Report 21009462 (Version 2)
Quarter: 2022Q3

REPORT INFORMATION
  Report Type: Report from Study
  Country: FR (occurrence: None)
  Receive Date: 20220627
  Receipt Date: 20220803
  Transmission Date: 20221027
  Serious: Yes (Death)
  Sender: FDA-Public Use
  Company Number: FR-ROCHE-3124637

PATIENT
  Age: 71 Year
  Sex: Male

DRUGS (6)
  1. ATEZOLIZUMAB [Suspect]
     Active Substance: ATEZOLIZUMAB
     Indication: Hormone-refractory prostate cancer
     Dosage: ON 01 JUN 2022, THE PATIENT RECEIVED THE MOST RECENT DOSES OF ATEZOLIZUMAB.
     Route: 041
     Dates: start: 20220511
  2. CABOZANTINIB [Suspect]
     Active Substance: CABOZANTINIB
     Indication: Hormone-refractory prostate cancer
     Dosage: ON /JUN/2022, THE PATIENT RECEIVED THE MOST RECENT DOSES OF CABOZANTINIB
     Route: 048
     Dates: start: 20220511, end: 202206
  3. GLYCERIN\MINERAL OIL\PETROLATUM [Concomitant]
     Active Substance: GLYCERIN\MINERAL OIL\PETROLATUM
  4. JANUMET [Concomitant]
     Active Substance: METFORMIN HYDROCHLORIDE\SITAGLIPTIN PHOSPHATE
     Dates: start: 20120101
  5. RAMIPRIL [Concomitant]
     Active Substance: RAMIPRIL
  6. APALUTAMIDE [Concomitant]
     Active Substance: APALUTAMIDE
     Dates: start: 20210601, end: 20220420

REACTIONS (1)
  - Death [Fatal]

NARRATIVE: CASE EVENT DATE: 20220606
